FAERS Safety Report 12612847 (Version 2)
Quarter: 2016Q3

REPORT INFORMATION
  Report Type: Report from Study
  Country: FR (occurrence: FR)
  Receive Date: 20160802
  Receipt Date: 20160912
  Transmission Date: 20161109
  Serious: Yes (Other)
  Sender: FDA-Public Use
  Company Number: FR-ROCHE-ITM201303IM003309

PATIENT
  Age: 74 Year
  Sex: Male
  Weight: 65 kg

DRUGS (11)
  1. PIRFENIDONE [Suspect]
     Active Substance: PIRFENIDONE
     Indication: IDIOPATHIC PULMONARY FIBROSIS
     Route: 048
     Dates: start: 20130202, end: 20130312
  2. FLECAINE [Concomitant]
     Active Substance: FLECAINIDE
     Indication: LEFT VENTRICULAR HYPERTROPHY
     Dosage: 150 MG
     Route: 048
     Dates: start: 20130215, end: 20130609
  3. OFLOCET [Concomitant]
     Active Substance: OFLOXACIN
     Indication: PROPHYLAXIS
     Dosage: 400 MG
     Route: 048
     Dates: start: 20130208, end: 20130222
  4. KARDEGIC [Concomitant]
     Active Substance: ASPIRIN LYSINE
     Indication: HYPERTENSION
     Dosage: 75 MG
     Route: 048
     Dates: end: 20130609
  5. RAMIPRIL. [Concomitant]
     Active Substance: RAMIPRIL
     Indication: HYPERTENSION
     Dosage: 2.5 MG
     Route: 048
     Dates: start: 20130215, end: 20130609
  6. OXYGEN. [Concomitant]
     Active Substance: OXYGEN
     Route: 065
     Dates: end: 20130609
  7. TAHOR [Concomitant]
     Active Substance: ATORVASTATIN CALCIUM
     Indication: HYPERCHOLESTEROLAEMIA
     Dosage: 20 MG
     Route: 048
     Dates: end: 20130609
  8. INEXIUM [Concomitant]
     Active Substance: ESOMEPRAZOLE
     Indication: DUODENOGASTRIC REFLUX
     Dosage: 20 MG
     Route: 048
     Dates: end: 20130609
  9. PRADAXA [Concomitant]
     Active Substance: DABIGATRAN ETEXILATE MESYLATE
     Indication: ANTICOAGULANT THERAPY
     Dosage: 220 MG
     Route: 048
     Dates: start: 20130215, end: 20130609
  10. AUGMENTIN [Concomitant]
     Active Substance: AMOXICILLIN\CLAVULANATE POTASSIUM
     Indication: PROPHYLAXIS
     Dosage: 3 GM
     Route: 048
     Dates: start: 20130208, end: 20130222
  11. LERCAN [Concomitant]
     Active Substance: LERCANIDIPINE
     Indication: HYPERTENSION
     Dosage: 20 MG
     Route: 048
     Dates: end: 20130609

REACTIONS (4)
  - Blood bilirubin increased [Not Recovered/Not Resolved]
  - Alanine aminotransferase increased [Not Recovered/Not Resolved]
  - Aspartate aminotransferase increased [Not Recovered/Not Resolved]
  - Gamma-glutamyltransferase increased [Not Recovered/Not Resolved]

NARRATIVE: CASE EVENT DATE: 20130307
